FAERS Safety Report 8715042 (Version 5)
Quarter: 2014Q1

REPORT INFORMATION
  Report Type: Spontaneous
  Country: US (occurrence: US)
  Receive Date: 20120809
  Receipt Date: 20140211
  Transmission Date: 20141002
  Serious: Yes (Hospitalization)
  Sender: FDA-Public Use
  Company Number: US-ELI_LILLY_AND_COMPANY-US201208000710

PATIENT
  Age: 84 Year
  Sex: Female

DRUGS (8)
  1. HUMULIN REGULAR [Suspect]
     Indication: TYPE 2 DIABETES MELLITUS
     Dosage: UNK, UNKNOWN
  2. HUMALOG LISPRO [Suspect]
     Indication: TYPE 2 DIABETES MELLITUS
     Dosage: 25 U, TID
     Route: 065
     Dates: start: 201002
  3. HUMALOG LISPRO [Suspect]
     Dosage: 25 U, TID
     Route: 065
  4. HUMALOG LISPRO [Suspect]
     Dosage: 80 U, PRN
     Route: 065
  5. HUMALOG LISPRO [Suspect]
     Dosage: 30 U, TID
     Route: 065
  6. HUMALOG LISPRO [Suspect]
     Dosage: UNK
     Route: 065
     Dates: start: 20140120
  7. LANTUS [Concomitant]
     Dosage: UNK, BID
  8. LANTUS [Concomitant]
     Dosage: UNK UNK, QD

REACTIONS (11)
  - Knee arthroplasty [Recovering/Resolving]
  - Intervertebral disc protrusion [Unknown]
  - Weight decreased [Unknown]
  - Blood glucose increased [Recovered/Resolved]
  - Drug ineffective [Unknown]
  - Hypophagia [Unknown]
  - Weight increased [Unknown]
  - Drug ineffective [Recovered/Resolved]
  - Macular degeneration [Unknown]
  - Visual acuity reduced [Unknown]
  - Deafness [Unknown]
